FAERS Safety Report 22641181 (Version 1)
Quarter: 2023Q2

REPORT INFORMATION
  Report Type: Report from Study
  Country: US (occurrence: US)
  Receive Date: 20230626
  Receipt Date: 20230626
  Transmission Date: 20230721
  Serious: Yes (Other)
  Sender: FDA-Public Use
  Company Number: US-002147023-NVSC2023US142482

PATIENT
  Sex: Male

DRUGS (7)
  1. TRIAMCINOLONE [Suspect]
     Active Substance: TRIAMCINOLONE
     Indication: Psoriasis
     Dosage: UNK
     Route: 065
  2. CLOBETASOL [Suspect]
     Active Substance: CLOBETASOL
     Indication: Psoriasis
     Dosage: UNK
     Route: 065
  3. DESONIDE [Suspect]
     Active Substance: DESONIDE
     Indication: Psoriasis
     Dosage: UNK
     Route: 065
  4. DOXYCYCLINE [Suspect]
     Active Substance: DOXYCYCLINE
     Indication: Psoriasis
     Route: 065
  5. LAMISIL [Suspect]
     Active Substance: TERBINAFINE HYDROCHLORIDE
     Indication: Psoriasis
     Dosage: UNK
     Route: 065
  6. PREDNISONE [Suspect]
     Active Substance: PREDNISONE
     Indication: Psoriasis
     Dosage: UNK
     Route: 065
  7. CALCIPOTRIENE [Suspect]
     Active Substance: CALCIPOTRIENE
     Indication: Psoriasis
     Dosage: UNK
     Route: 065

REACTIONS (17)
  - Psoriatic arthropathy [Unknown]
  - Dermal cyst [Unknown]
  - Seborrhoeic dermatitis [Unknown]
  - Rosacea [Unknown]
  - Fibrous histiocytoma [Unknown]
  - Onychomycosis [Unknown]
  - Eczema [Unknown]
  - Onycholysis [Unknown]
  - Nail pitting [Unknown]
  - Nail disorder [Unknown]
  - Eczema nummular [Unknown]
  - Psoriasis [Unknown]
  - Rash pruritic [Unknown]
  - Skin exfoliation [Unknown]
  - Skin plaque [Unknown]
  - Rash vesicular [Unknown]
  - Drug ineffective [Unknown]
